FAERS Safety Report 24870270 (Version 2)
Quarter: 2025Q1

REPORT INFORMATION
  Report Type: Spontaneous
  Country: US (occurrence: US)
  Receive Date: 20250121
  Receipt Date: 20250308
  Transmission Date: 20250409
  Serious: No
  Sender: SANOFI AVENTIS
  Company Number: US-SA-2025SA018086

PATIENT
  Age: 62 Year
  Sex: Female

DRUGS (1)
  1. DUPIXENT [Suspect]
     Active Substance: DUPILUMAB
     Indication: Product used for unknown indication
     Dosage: 200 MG, BIW
     Route: 058
     Dates: start: 20241228

REACTIONS (3)
  - Dyspnoea [Unknown]
  - Injection site pain [Unknown]
  - Inappropriate schedule of product administration [Unknown]
